FAERS Safety Report 11344766 (Version 3)
Quarter: 2015Q4

REPORT INFORMATION
  Report Type: Report from Study
  Country: DE (occurrence: DE)
  Receive Date: 20150806
  Receipt Date: 20151201
  Transmission Date: 20160304
  Serious: Yes (Hospitalization)
  Sender: FDA-Public Use
  Company Number: DE-BAYER-2015-390827

PATIENT
  Age: 79 Year
  Sex: Male
  Weight: 71 kg

DRUGS (11)
  1. XOFIGO [Suspect]
     Active Substance: RADIUM RA-223 DICHLORIDE
     Indication: PROSTATE CANCER STAGE IV
     Dosage: 3.55 MBQ
     Route: 042
     Dates: start: 20150803, end: 20150803
  2. TRENANTONE [Concomitant]
     Active Substance: LEUPROLIDE ACETATE
     Dosage: EVERY THREE MONTHS
     Dates: start: 2011
  3. XOFIGO [Suspect]
     Active Substance: RADIUM RA-223 DICHLORIDE
     Indication: PROSTATE CANCER STAGE IV
     Dosage: 3.55 MBQ
     Dates: start: 20150630
  4. PREDNISOLONE. [Concomitant]
     Active Substance: PREDNISOLONE
     Indication: PAIN
     Dosage: DAILY DOSE 10 MG
     Dates: start: 2012
  5. CALCIUM [CALCIUM] [Concomitant]
     Active Substance: CALCIUM
     Indication: MINERAL SUPPLEMENTATION
     Dosage: DAILY DOSE 600 MG
     Dates: start: 2012
  6. XOFIGO [Suspect]
     Active Substance: RADIUM RA-223 DICHLORIDE
     Indication: PROSTATE CANCER STAGE IV
     Dosage: 3.602 MBQ
     Dates: start: 20150505
  7. VIGANTOLETTEN [Concomitant]
     Active Substance: CHOLECALCIFEROL
     Indication: SUPPLEMENTATION THERAPY
     Dosage: DAILY DOSE 500 MG
     Dates: start: 2012
  8. TILICOMP [Concomitant]
     Dosage: 100 MG, QD (EVERY MORNING)
     Route: 048
     Dates: start: 201501
  9. XOFIGO [Suspect]
     Active Substance: RADIUM RA-223 DICHLORIDE
     Indication: METASTASES TO BONE
     Dosage: 3.658 MBQ
     Dates: start: 20150602
  10. ZOMETA [Concomitant]
     Active Substance: ZOLEDRONIC ACID
     Dosage: EVERY FOURTH WEEK
     Dates: start: 201202
  11. ESOMEPRAZOLE [Concomitant]
     Active Substance: ESOMEPRAZOLE
     Dosage: TAKEN ON DEMAND
     Dates: start: 2012

REACTIONS (2)
  - Large intestinal haemorrhage [Recovered/Resolved]
  - Syncope [Recovered/Resolved]

NARRATIVE: CASE EVENT DATE: 20150727
